FAERS Safety Report 5062876-7 (Version None)
Quarter: 2006Q3

REPORT INFORMATION
  Report Type: 
  Country: None (occurrence: None)
  Receive Date: 20060724
  Receipt Date: 20060516
  Transmission Date: 20061208
  Serious: Yes (Other)
  Sender: FDA-Public Use
  Company Number: CHNY2006NL01586

PATIENT
  Age: 57 Year
  Sex: Female
  Weight: 80 kg

DRUGS (3)
  1. SCOPODERM TTS (NCH)(HYOSCINE HYDROBROMIDE) TRANS-THERAPEUTIC-SYSTEM [Suspect]
     Indication: MOTION SICKNESS
     Dosage: 1 DF, ONCE/SINGLE, TRANSDERMAL
     Route: 062
     Dates: start: 20060319, end: 20060320
  2. OXYBUTYNIN CHLORIDE [Concomitant]
  3. THYRAX (LEVOTHYROXINE) [Concomitant]

REACTIONS (3)
  - DRY MOUTH [None]
  - PHARYNGEAL OEDEMA [None]
  - SUFFOCATION FEELING [None]
